FAERS Safety Report 25040462 (Version 2)
Quarter: 2025Q1

REPORT INFORMATION
  Report Type: Spontaneous
  Country: BE (occurrence: BE)
  Receive Date: 20250305
  Receipt Date: 20250322
  Transmission Date: 20250409
  Serious: Yes (Other)
  Sender: AUROBINDO
  Company Number: BE-ROCHE-10000157226

PATIENT
  Sex: Female

DRUGS (3)
  1. BENDAMUSTINE [Suspect]
     Active Substance: BENDAMUSTINE
     Indication: Product used for unknown indication
     Route: 065
     Dates: start: 2020
  2. RITUXIMAB [Suspect]
     Active Substance: RITUXIMAB
     Indication: Product used for unknown indication
     Route: 065
     Dates: start: 2020
  3. RITUXIMAB [Suspect]
     Active Substance: RITUXIMAB
     Route: 065
     Dates: start: 2024

REACTIONS (4)
  - Autoimmune haemolytic anaemia [Unknown]
  - Therapy partial responder [Unknown]
  - Therapeutic product effect decreased [Unknown]
  - Disease recurrence [Unknown]

NARRATIVE: CASE EVENT DATE: 20200101
